FAERS Safety Report 15340925 (Version 1)
Quarter: 2018Q3

REPORT INFORMATION
  Report Type: Spontaneous
  Country: US (occurrence: US)
  Receive Date: 20180831
  Receipt Date: 20180831
  Transmission Date: 20181010
  Serious: No
  Sender: FDA-Public Use
  Company Number: US-SA-2018SA242300

PATIENT
  Age: 50 Year
  Sex: Male

DRUGS (1)
  1. TUBERSOL [Suspect]
     Active Substance: TUBERCULIN PURIFIED PROTEIN DERIVATIVE
     Indication: IMMUNISATION
     Dosage: 0.1 ML, 1X
     Route: 065
     Dates: start: 20180822, end: 20180822

REACTIONS (1)
  - Expired product administered [Unknown]
